FAERS Safety Report 13120650 (Version 4)
Quarter: 2017Q3

REPORT INFORMATION
  Report Type: Spontaneous
  Country: US (occurrence: US)
  Receive Date: 20170117
  Receipt Date: 20170915
  Transmission Date: 20171127
  Serious: No
  Sender: FDA-Public Use
  Company Number: US-PFIZER INC-2017012640

PATIENT
  Age: 68 Year
  Sex: Female

DRUGS (3)
  1. SOMAVERT [Suspect]
     Active Substance: PEGVISOMANT
     Indication: PITUITARY TUMOUR
  2. SOMAVERT [Suspect]
     Active Substance: PEGVISOMANT
     Indication: BRAIN NEOPLASM
     Dosage: 20 MG, UNK
  3. SOMAVERT [Suspect]
     Active Substance: PEGVISOMANT
     Indication: MULTIPLE ENDOCRINE NEOPLASIA TYPE 1
     Dosage: 40 MG, DAILY (EVERY MORNING)
     Dates: start: 200603

REACTIONS (4)
  - Drug ineffective [Unknown]
  - Product quality issue [Unknown]
  - Product use issue [Unknown]
  - Incorrect dose administered [Unknown]
